FAERS Safety Report 10213660 (Version 1)
Quarter: 2014Q2

REPORT INFORMATION
  Report Type: Spontaneous
  Country: GB (occurrence: GB)
  Receive Date: 20140603
  Receipt Date: 20140603
  Transmission Date: 20141212
  Serious: Yes (Other)
  Sender: FDA-Public Use
  Company Number: GB-009507513-1405GBR014801

PATIENT
  Age: 79 Year
  Sex: Male

DRUGS (1)
  1. PROSCAR 5 MG FILM-COATED TABLETS [Suspect]
     Dosage: 5 MG, QD
     Route: 048
     Dates: start: 20140401

REACTIONS (1)
  - Visual acuity reduced [Unknown]
